FAERS Safety Report 5192088-8 (Version None)
Quarter: 2006Q4

REPORT INFORMATION
  Report Type: 
  Country: None (occurrence: None)
  Receive Date: 20061221
  Receipt Date: 20061221
  Transmission Date: 20070319
  Serious: Yes (Hospitalization)
  Sender: FDA-Public Use
  Company Number: None

PATIENT
  Sex: Male
  Weight: 84.8226 kg

DRUGS (18)
  1. DOXIL [Suspect]
     Indication: PROSTATE CANCER
     Dosage: 60 MG DAY 1 Q 28 DAY IV DRIP
     Route: 041
     Dates: start: 20060727, end: 20061019
  2. TAXOTERE [Suspect]
     Indication: PROSTATE CANCER
     Dosage: 60 MG DAY 1,8,15 Q 28 D IV DRIP
     Route: 041
     Dates: start: 20060727, end: 20061102
  3. MAX-OXIDE [Concomitant]
  4. LOPERAMIDE HCL [Concomitant]
  5. TRAZODONE HCL [Concomitant]
  6. PAXIL [Concomitant]
  7. GLUCOTROL XL [Concomitant]
  8. TOPROL-XL [Concomitant]
  9. PRILOSEC [Concomitant]
  10. COUMADIN [Concomitant]
  11. CRESTOR [Concomitant]
  12. LEOVXYL [Concomitant]
  13. LASIX [Concomitant]
  14. PATASSIUM KCL [Concomitant]
  15. LISINOPRIL [Concomitant]
  16. MS CONTIN [Concomitant]
  17. HYDROCODONE BITARTRATE [Concomitant]
  18. UROCET [Concomitant]

REACTIONS (4)
  - CATHETER SITE HAEMORRHAGE [None]
  - COAGULOPATHY [None]
  - DISEASE PROGRESSION [None]
  - INTERNATIONAL NORMALISED RATIO INCREASED [None]
